FAERS Safety Report 9122596 (Version 1)
Quarter: 2013Q1

REPORT INFORMATION
  Report Type: Spontaneous
  Country: US (occurrence: US)
  Receive Date: 20130115
  Receipt Date: 20130115
  Transmission Date: 20140127
  Serious: Yes (Life-Threatening, Hospitalization, Other)
  Sender: FDA-Public Use
  Company Number: US-009507513-1301USA002123

PATIENT
  Sex: Female

DRUGS (6)
  1. SINGULAIR [Suspect]
     Route: 048
  2. GLOBULIN, IMMUNE [Concomitant]
     Indication: ASTHMA
     Dosage: 500 IU/ML
     Route: 042
  3. BRONCHODUAL [Concomitant]
     Indication: PRODUCT USED FOR UNKNOWN INDICATION
  4. BAMBUTEROL [Suspect]
     Route: 048
  5. SEREVENT [Suspect]
  6. XOLAIR [Suspect]
     Dosage: 300 MG, SINGLE
     Route: 058

REACTIONS (5)
  - Swelling face [Unknown]
  - Status asthmaticus [Unknown]
  - Laryngeal oedema [Unknown]
  - Chest discomfort [Unknown]
  - Bronchospasm [Unknown]
